FAERS Safety Report 8388750-6 (Version None)
Quarter: 2012Q2

REPORT INFORMATION
  Report Type: 
  Country: None (occurrence: None)
  Receive Date: 20120528
  Receipt Date: 20120515
  Transmission Date: 20120825
  Serious: Yes (Other)
  Sender: FDA-Public Use
  Company Number: FR-BRISTOL-MYERS SQUIBB COMPANY-16624819

PATIENT
  Age: 32 Year
  Sex: Female

DRUGS (3)
  1. CISPLATIN [Suspect]
     Indication: ADENOCARCINOMA
  2. BLEOMYCIN SULFATE [Suspect]
     Indication: ADENOCARCINOMA
     Dosage: 3 DAYS
  3. ETOPOSIDE [Suspect]
     Indication: ADENOCARCINOMA

REACTIONS (3)
  - LIVE BIRTH [None]
  - NEUTROPENIA [None]
  - PREGNANCY [None]
